FAERS Safety Report 25773954 (Version 1)
Quarter: 2025Q3

REPORT INFORMATION
  Report Type: Spontaneous
  Country: US (occurrence: None)
  Receive Date: 20250907
  Receipt Date: 20250907
  Transmission Date: 20251021
  Serious: Yes (Hospitalization, Disabling)
  Sender: FDA-CTU
  Company Number: None

PATIENT
  Age: 29 Year
  Sex: Female
  Weight: 62.55 kg

DRUGS (5)
  1. DROPERIDOL [Suspect]
     Active Substance: DROPERIDOL
     Indication: Nausea
  2. DROPERIDOL [Suspect]
     Active Substance: DROPERIDOL
     Indication: Vomiting
  3. DROPERIDOL [Suspect]
     Active Substance: DROPERIDOL
     Indication: Cholelithiasis
  4. AMITRIPTYLINE [Concomitant]
     Active Substance: AMITRIPTYLINE
  5. Zoloft 50 mg [Concomitant]

REACTIONS (16)
  - Drug monitoring procedure not performed [None]
  - Adverse reaction [None]
  - Tremor [None]
  - Vasodilatation [None]
  - Fatigue [None]
  - Product prescribing issue [None]
  - Drug interaction [None]
  - Sinus tachycardia [None]
  - Palpitations [None]
  - Dyspnoea [None]
  - Dyspnoea [None]
  - Fatigue [None]
  - Anxiety [None]
  - Feeling abnormal [None]
  - Condition aggravated [None]
  - Left atrial enlargement [None]

NARRATIVE: CASE EVENT DATE: 20250830
